FAERS Safety Report 9603833 (Version 6)
Quarter: 2016Q4

REPORT INFORMATION
  Report Type: Report from Study
  Country: BR (occurrence: BR)
  Receive Date: 20131008
  Receipt Date: 20161201
  Transmission Date: 20170207
  Serious: Yes (Hospitalization, Other)
  Sender: FDA-Public Use
  Company Number: BR-ROCHE-1270531

PATIENT
  Age: 56 Year
  Sex: Female
  Weight: 79 kg

DRUGS (5)
  1. OMEPRAZOLE. [Concomitant]
     Active Substance: OMEPRAZOLE
     Indication: ABDOMINAL PAIN UPPER
     Route: 065
  2. PREDNISONE. [Concomitant]
     Active Substance: PREDNISONE
     Route: 065
  3. DESALEX [Concomitant]
     Active Substance: DESLORATADINE
  4. ADVIL [Concomitant]
     Active Substance: IBUPROFEN
  5. MABTHERA [Suspect]
     Active Substance: RITUXIMAB
     Indication: RHEUMATOID ARTHRITIS
     Dosage: LATEST INFUSION :29/SEP/2011, FEB/2014
     Route: 042
     Dates: start: 20100801

REACTIONS (15)
  - Dyspnoea [Recovered/Resolved]
  - Dyspnoea [Unknown]
  - Malaise [Not Recovered/Not Resolved]
  - Memory impairment [Unknown]
  - Diabetes mellitus [Unknown]
  - Muscle spasms [Unknown]
  - Pain [Not Recovered/Not Resolved]
  - Cough [Recovering/Resolving]
  - Cholelithiasis [Recovered/Resolved]
  - Nasopharyngitis [Not Recovered/Not Resolved]
  - Breath sounds abnormal [Unknown]
  - Drug ineffective [Unknown]
  - Hepatitis [Not Recovered/Not Resolved]
  - Gait disturbance [Not Recovered/Not Resolved]
  - Arthralgia [Not Recovered/Not Resolved]

NARRATIVE: CASE EVENT DATE: 201110
